FAERS Safety Report 9899646 (Version 2)
Quarter: 2014Q1

REPORT INFORMATION
  Report Type: Spontaneous
  Country: NL (occurrence: NL)
  Receive Date: 20140214
  Receipt Date: 20140228
  Transmission Date: 20141002
  Serious: Yes (Hospitalization)
  Sender: FDA-Public Use
  Company Number: NL-CELGENEUS-114-POMAL-14020536

PATIENT
  Age: 69 Year
  Sex: Female

DRUGS (1)
  1. IMNOVID [Suspect]
     Indication: PRODUCT USED FOR UNKNOWN INDICATION
     Dosage: 4 MILLIGRAM
     Route: 048

REACTIONS (1)
  - Bronchopulmonary aspergillosis [Not Recovered/Not Resolved]
